FAERS Safety Report 18595015 (Version 1)
Quarter: 2020Q4

REPORT INFORMATION
  Report Type: Spontaneous
  Country: US (occurrence: US)
  Receive Date: 20201209
  Receipt Date: 20201209
  Transmission Date: 20210114
  Serious: Yes (Other)
  Sender: FDA-Public Use
  Company Number: US-ASTRAZENECA-2020SF60494

PATIENT
  Age: 76 Year
  Sex: Male
  Weight: 100 kg

DRUGS (4)
  1. SEROQUEL [Suspect]
     Active Substance: QUETIAPINE FUMARATE
     Indication: PRODUCT USED FOR UNKNOWN INDICATION
     Dosage: UNKNOWN
     Route: 048
  2. SEROQUEL [Suspect]
     Active Substance: QUETIAPINE FUMARATE
     Indication: PRODUCT USED FOR UNKNOWN INDICATION
     Dosage: 100 MG AT BEDTIME UNKNOWN
     Route: 048
  3. NEUPRO [Concomitant]
     Active Substance: ROTIGOTINE
  4. SINEMET [Concomitant]
     Active Substance: CARBIDOPA\LEVODOPA

REACTIONS (17)
  - Abnormal behaviour [Unknown]
  - Gastric disorder [Unknown]
  - Ill-defined disorder [Unknown]
  - Bladder disorder [Not Recovered/Not Resolved]
  - Posture abnormal [Unknown]
  - Crying [Unknown]
  - Foreign body in throat [Not Recovered/Not Resolved]
  - Throat irritation [Not Recovered/Not Resolved]
  - Constipation [Not Recovered/Not Resolved]
  - Therapeutic response unexpected [Unknown]
  - Agitation [Unknown]
  - Hallucination [Not Recovered/Not Resolved]
  - Heart rate decreased [Not Recovered/Not Resolved]
  - Confusional state [Unknown]
  - Gait disturbance [Unknown]
  - Sleep apnoea syndrome [Not Recovered/Not Resolved]
  - Delusion [Unknown]

NARRATIVE: CASE EVENT DATE: 20200723
